FAERS Safety Report 8583113-2 (Version None)
Quarter: 2012Q2

REPORT INFORMATION
  Report Type: 
  Country: None (occurrence: None)
  Receive Date: 20120423
  Receipt Date: 20091215
  Transmission Date: 20120825
  Serious: Yes (Hospitalization, Other)
  Sender: FDA-Public Use
  Company Number: PHEH2009US10051

PATIENT
  Age: 8 Year
  Sex: Male
  Weight: 22 kg

DRUGS (4)
  1. BLOOD TRANSFUSION, AUXILIARY PRODUCTS (NO INGREDIENTS/SUBSTANCES) [Concomitant]
  2. EXJADE [Suspect]
     Indication: IRON OVERLOAD
     Dosage: 500 MG, QD, ORAL ; 375 MG, QD, ORAL ; 500 MG, QD, ORAL ; 37 5MG, QD, ORA
     Route: 048
     Dates: start: 20090501
  3. EXJADE [Suspect]
     Indication: IRON OVERLOAD
     Dosage: 500 MG, QD, ORAL ; 375 MG, QD, ORAL ; 500 MG, QD, ORAL ; 37 5MG, QD, ORA
     Route: 048
     Dates: start: 20070305, end: 20080801
  4. EXJADE [Suspect]
     Indication: IRON OVERLOAD
     Dosage: 500 MG, QD, ORAL ; 375 MG, QD, ORAL ; 500 MG, QD, ORAL ; 37 5MG, QD, ORA
     Route: 048
     Dates: end: 20090501

REACTIONS (11)
  - RENAL TUBULAR DISORDER [None]
  - BLOOD ELECTROLYTES DECREASED [None]
  - BACK PAIN [None]
  - FANCONI SYNDROME ACQUIRED [None]
  - METABOLIC ACIDOSIS [None]
  - AMINO ACID LEVEL INCREASED [None]
  - HYPOPHOSPHATAEMIA [None]
  - CARBON DIOXIDE DECREASED [None]
  - BLOOD BICARBONATE ABNORMAL [None]
  - HYPOKALAEMIA [None]
  - GLUCOSE URINE PRESENT [None]
